FAERS Safety Report 6658776-9 (Version None)
Quarter: 2010Q1

REPORT INFORMATION
  Report Type: 
  Country: None (occurrence: None)
  Receive Date: 20100330
  Receipt Date: 20100324
  Transmission Date: 20100710
  Serious: Yes (Death, Other)
  Sender: FDA-Public Use
  Company Number: PHHY2010JP16171

PATIENT
  Age: 54 Year
  Sex: Female
  Weight: 43.2 kg

DRUGS (5)
  1. CYCLOSPORINE [Suspect]
     Indication: INTERSTITIAL LUNG DISEASE
     Route: 048
  2. CYCLOSPORINE [Suspect]
     Route: 042
  3. PREDNISOLONE [Suspect]
     Indication: BEHCET'S SYNDROME
     Dosage: 30 MG/DAY
     Route: 048
  4. PREDNISOLONE [Suspect]
     Dosage: 20 MG/DAY
     Route: 048
  5. SALAZOPYRIN [Concomitant]
     Indication: BEHCET'S SYNDROME
     Route: 048

REACTIONS (48)
  - ABSCESS FUNGAL [None]
  - ADRENAL ATROPHY [None]
  - ALVEOLAR PROTEINOSIS [None]
  - AORTIC ARTERIOSCLEROSIS [None]
  - ASCITES [None]
  - ASPERGILLOSIS [None]
  - BEHCET'S SYNDROME [None]
  - CARDIOMYOPATHY [None]
  - CIRCULATORY COLLAPSE [None]
  - CYST [None]
  - DECUBITUS ULCER [None]
  - DEPRESSED LEVEL OF CONSCIOUSNESS [None]
  - DISSEMINATED INTRAVASCULAR COAGULATION [None]
  - DRY SKIN [None]
  - FUNGAL SEPSIS [None]
  - GOITRE [None]
  - HAEMOTHORAX [None]
  - HEART RATE DECREASED [None]
  - HEPATIC CONGESTION [None]
  - HERPES SIMPLEX [None]
  - HERPES VIRUS INFECTION [None]
  - HYPERCOAGULATION [None]
  - HYPOTENSION [None]
  - HYPOXIA [None]
  - ILEAL ULCER [None]
  - INTERSTITIAL LUNG DISEASE [None]
  - LARGE INTESTINAL ULCER [None]
  - LIPOSARCOMA [None]
  - MALNUTRITION [None]
  - MITRAL VALVE DISEASE [None]
  - MYELODYSPLASTIC SYNDROME [None]
  - OXYGEN SATURATION DECREASED [None]
  - PANCYTOPENIA [None]
  - PERICARDIAL EFFUSION [None]
  - PNEUMOCYSTIS JIROVECI PNEUMONIA [None]
  - PULMONARY CONGESTION [None]
  - PULMONARY VALVE CALCIFICATION [None]
  - PYREXIA [None]
  - RENAL TUBULAR NECROSIS [None]
  - RESPIRATORY FAILURE [None]
  - SEPTIC SHOCK [None]
  - SPLEEN CONGESTION [None]
  - STOMATITIS [None]
  - SYSTEMIC MYCOSIS [None]
  - TACHYCARDIA [None]
  - THROMBOSIS MESENTERIC VESSEL [None]
  - TRICUSPID VALVE CALCIFICATION [None]
  - VIRAL TONSILLITIS [None]
